FAERS Safety Report 26065011 (Version 1)
Quarter: 2025Q4

REPORT INFORMATION
  Report Type: Spontaneous
  Country: US (occurrence: US)
  Receive Date: 20251119
  Receipt Date: 20251119
  Transmission Date: 20260117
  Serious: Yes (Hospitalization, Other)
  Sender: AMGEN
  Company Number: US-AMGEN-USASP2025225397

PATIENT
  Age: 37 Year
  Sex: Female
  Weight: 67 kg

DRUGS (5)
  1. BLINATUMOMAB [Suspect]
     Active Substance: BLINATUMOMAB
     Indication: Breast cancer
     Dosage: 44.6 MICROGRAM
     Route: 040
     Dates: start: 20251001
  2. PREDNISONE [Suspect]
     Active Substance: PREDNISONE
     Indication: Product used for unknown indication
     Dosage: UNK
     Route: 065
     Dates: start: 20251010
  3. HYDROXYUREA [Suspect]
     Active Substance: HYDROXYUREA
     Indication: Breast cancer
     Dosage: 1000 MILLIGRAM, QD
     Route: 048
     Dates: start: 20250925, end: 20251009
  4. FIRST BXN MOUTHWASH [Concomitant]
     Active Substance: DIPHENHYDRAMINE HYDROCHLORIDE\LIDOCAINE HYDROCHLORIDE\NYSTATIN
  5. NYSTATIN [Concomitant]
     Active Substance: NYSTATIN
     Dosage: UNK
     Dates: start: 20251006

REACTIONS (4)
  - Immune-mediated encephalopathy [Recovered/Resolved]
  - Breast cancer metastatic [Unknown]
  - Cytokine release syndrome [Recovered/Resolved]
  - Off label use [Unknown]

NARRATIVE: CASE EVENT DATE: 20251001
